FAERS Safety Report 9503728 (Version 1)
Quarter: 2013Q1

REPORT INFORMATION
  Report Type: Spontaneous
  Country: US (occurrence: None)
  Receive Date: 20130107
  Receipt Date: 20130107
  Transmission Date: 20140127
  Serious: No
  Sender: FDA-Public Use
  Company Number: PHEH2012US020343

PATIENT
  Age: 45 Year
  Sex: Female
  Weight: 74.4 kg

DRUGS (1)
  1. GILENYA [Suspect]
     Indication: MULTIPLE SCLEROSIS
     Dates: start: 20110901

REACTIONS (4)
  - Sleep disorder [None]
  - Malaise [None]
  - Fatigue [None]
  - Influenza [None]
